FAERS Safety Report 10956374 (Version 1)
Quarter: 2015Q1

REPORT INFORMATION
  Report Type: Spontaneous
  Country: US (occurrence: US)
  Receive Date: 20150326
  Receipt Date: 20150326
  Transmission Date: 20150721
  Serious: Yes (Death, Other)
  Sender: FDA-Public Use
  Company Number: US-CIPLA LTD.-2015US02293

PATIENT

DRUGS (6)
  1. VENLAFAXINE [Suspect]
     Active Substance: VENLAFAXINE HYDROCHLORIDE
  2. OXYCODONE [Suspect]
     Active Substance: OXYCODONE
  3. CETIRIZINE [Suspect]
     Active Substance: CETIRIZINE HYDROCHLORIDE
  4. ORPHENADRINE [Suspect]
     Active Substance: ORPHENADRINE
  5. OMEPRAZOLE. [Suspect]
     Active Substance: OMEPRAZOLE
  6. GABAPENTIN. [Suspect]
     Active Substance: GABAPENTIN

REACTIONS (3)
  - Completed suicide [Fatal]
  - Respiratory arrest [Unknown]
  - Cardiac arrest [Unknown]
